FAERS Safety Report 4618592-6 (Version None)
Quarter: 2005Q1

REPORT INFORMATION
  Report Type: 
  Country: None (occurrence: None)
  Receive Date: 20050323
  Receipt Date: 20050304
  Transmission Date: 20050727
  Serious: Yes (Hospitalization)
  Sender: FDA-Public Use
  Company Number: FR_050105655

PATIENT
  Age: 65 Year
  Sex: Male

DRUGS (2)
  1. GEMZAR [Suspect]
     Indication: NON-SMALL CELL LUNG CANCER
     Dosage: 1000 MG/M2/1 OTHER
     Route: 050
     Dates: start: 20050103, end: 20050119
  2. MORPHINE SULFATE [Concomitant]

REACTIONS (2)
  - CONFUSIONAL STATE [None]
  - ERYSIPELAS [None]
